FAERS Safety Report 14158595 (Version 4)
Quarter: 2018Q1

REPORT INFORMATION
  Report Type: Spontaneous
  Country: DE (occurrence: DE)
  Receive Date: 20171103
  Receipt Date: 20180308
  Transmission Date: 20180508
  Serious: Yes (Other)
  Sender: FDA-Public Use
  Company Number: DE-PFIZER INC-2017470415

PATIENT
  Age: 20 Year
  Sex: Male

DRUGS (1)
  1. PREGABALIN. [Suspect]
     Active Substance: PREGABALIN
     Indication: PARTIAL SEIZURES
     Dosage: 150 MG, DAILY

REACTIONS (3)
  - Suicide attempt [Recovering/Resolving]
  - Depression [Recovering/Resolving]
  - Condition aggravated [Recovering/Resolving]
